FAERS Safety Report 9426322 (Version 1)
Quarter: 2013Q3

REPORT INFORMATION
  Report Type: Spontaneous
  Country: US (occurrence: None)
  Receive Date: 20130729
  Receipt Date: 20130729
  Transmission Date: 20140515
  Serious: Yes (Congenital Anomaly)
  Sender: FDA-Public Use
  Company Number: None

PATIENT
  Age: 29 Year
  Sex: Female

DRUGS (1)
  1. BUPROPION XL [Suspect]
     Indication: DEPRESSION
     Dosage: 150MG QD ORAL
     Route: 048
     Dates: start: 20120604, end: 20121110

REACTIONS (2)
  - Congenital central nervous system anomaly [None]
  - Maternal drugs affecting foetus [None]
